FAERS Safety Report 6393342-4 (Version None)
Quarter: 2009Q4

REPORT INFORMATION
  Report Type: 
  Country: None (occurrence: None)
  Receive Date: 20091008
  Receipt Date: 20090930
  Transmission Date: 20100525
  Serious: Yes (Other)
  Sender: FDA-Public Use
  Company Number: SK-BAXTER-2009BH014804

PATIENT
  Age: 15 Year
  Sex: Male
  Weight: 44 kg

DRUGS (2)
  1. GAMMAGARD LIQUID [Suspect]
     Indication: SEPSIS
     Route: 042
     Dates: start: 20090922, end: 20090922
  2. CEFTAZIDIME [Concomitant]
     Indication: ANTIBIOTIC THERAPY
     Route: 042
     Dates: start: 20090921

REACTIONS (5)
  - ANAPHYLACTIC REACTION [None]
  - BACK PAIN [None]
  - CHILLS [None]
  - CYANOSIS [None]
  - PAIN IN EXTREMITY [None]
